FAERS Safety Report 15439943 (Version 1)
Quarter: 2018Q3

REPORT INFORMATION
  Report Type: Spontaneous
  Country: US (occurrence: US)
  Receive Date: 20180925
  Receipt Date: 20180925
  Transmission Date: 20181010
  Serious: Yes (Other)
  Sender: FDA-Public Use
  Company Number: None

PATIENT
  Age: 69 Year
  Sex: Female
  Weight: 77.4 kg

DRUGS (10)
  1. PROBIOTIC [Concomitant]
     Active Substance: PROBIOTICS NOS
  2. PREDNISONE 20 MG. TABLETS [Suspect]
     Active Substance: PREDNISONE
     Indication: INFECTION
     Dosage: ?          QUANTITY:1 TABLET(S);?
     Route: 048
     Dates: start: 20180919, end: 20180923
  3. PREDNISONE 20 MG. TABLETS [Suspect]
     Active Substance: PREDNISONE
     Indication: COUGH
     Dosage: ?          QUANTITY:1 TABLET(S);?
     Route: 048
     Dates: start: 20180919, end: 20180923
  4. PRAVASTATIN. [Concomitant]
     Active Substance: PRAVASTATIN
  5. HYDROMET (HYDROCOD/HOMA) [Concomitant]
  6. MELATONIN [Concomitant]
     Active Substance: MELATONIN
  7. BIOCLEANSE [Concomitant]
  8. VITAMIN C [Concomitant]
     Active Substance: ASCORBIC ACID
  9. PLEXIS EASE [Concomitant]
  10. MEGA X [Concomitant]

REACTIONS (1)
  - Insomnia [None]

NARRATIVE: CASE EVENT DATE: 20180921
